FAERS Safety Report 9999880 (Version 2)
Quarter: 2014Q1

REPORT INFORMATION
  Report Type: Spontaneous
  Country: US (occurrence: US)
  Receive Date: 20140312
  Receipt Date: 20140312
  Transmission Date: 20141002
  Serious: No
  Sender: FDA-Public Use
  Company Number: US-GILEAD-2012-0057103

PATIENT
  Age: 78 Year
  Sex: Female

DRUGS (2)
  1. LETAIRIS [Suspect]
     Indication: PULMONARY HYPERTENSION
     Dosage: 5 MG, UNK
     Route: 048
     Dates: start: 20110728, end: 20120625
  2. LETAIRIS [Suspect]
     Indication: SJOGREN^S SYNDROME
     Dosage: UNK
     Route: 048

REACTIONS (1)
  - Haematocrit decreased [Unknown]
